FAERS Safety Report 17583956 (Version 1)
Quarter: 2020Q1

REPORT INFORMATION
  Report Type: Spontaneous
  Country: US (occurrence: US)
  Receive Date: 20200326
  Receipt Date: 20200326
  Transmission Date: 20200409
  Serious: No
  Sender: FDA-Public Use
  Company Number: US-SUN PHARMACEUTICAL INDUSTRIES LTD-2019R1-219860

PATIENT
  Age: 66 Year
  Sex: Female

DRUGS (1)
  1. QUINIDINE [Suspect]
     Active Substance: QUINIDINE
     Indication: ATRIAL FIBRILLATION
     Dosage: 324 MILLIGRAM, BID
     Route: 065
     Dates: start: 2019

REACTIONS (3)
  - Abdominal pain [Unknown]
  - Product physical issue [Unknown]
  - Abdominal distension [Unknown]

NARRATIVE: CASE EVENT DATE: 2019
